FAERS Safety Report 19744792 (Version 1)
Quarter: 2021Q3

REPORT INFORMATION
  Report Type: Spontaneous
  Country: IT (occurrence: IT)
  Receive Date: 20210825
  Receipt Date: 20210825
  Transmission Date: 20211014
  Serious: Yes (Hospitalization)
  Sender: FDA-Public Use
  Company Number: IT-MICRO LABS LIMITED-ML2021-02106

PATIENT
  Age: 62 Year
  Sex: Female

DRUGS (1)
  1. ACETAZOLAMIDE EXTENDED?RELEASE CAPSULES,?500 MG [Suspect]
     Active Substance: ACETAZOLAMIDE

REACTIONS (1)
  - Pemphigoid [Recovered/Resolved]
